FAERS Safety Report 21958418 (Version 2)
Quarter: 2023Q1

REPORT INFORMATION
  Report Type: Spontaneous
  Country: JP (occurrence: JP)
  Receive Date: 20230206
  Receipt Date: 20230227
  Transmission Date: 20230418
  Serious: Yes (Other)
  Sender: FDA-Public Use
  Company Number: JP-PFIZER INC-202300022108

PATIENT
  Age: 51 Year
  Sex: Female
  Weight: 62 kg

DRUGS (8)
  1. PAXLOVID [Suspect]
     Active Substance: NIRMATRELVIR\RITONAVIR
     Indication: COVID-19 treatment
     Dosage: 3 DF, 2X/DAY
     Route: 048
     Dates: start: 20230116, end: 20230116
  2. METFORMIN [Concomitant]
     Active Substance: METFORMIN HYDROCHLORIDE
     Indication: Diabetes mellitus
     Dosage: 2T, 2X AFTER BREAKFAST AND DINNER/DAY
     Route: 048
  3. JANUVIA [Concomitant]
     Active Substance: SITAGLIPTIN PHOSPHATE
     Indication: Diabetes mellitus
     Dosage: 2T, 1X; AFTER BREAKFAST/DAY
     Route: 048
  4. BIO-THREE [Concomitant]
     Active Substance: HERBALS
     Dosage: UNK
     Route: 048
  5. CALONAL [Concomitant]
     Active Substance: ACETAMINOPHEN
     Dosage: AS NEEDED WHEN PYREXIA, ONE TABLET ONCE
     Route: 048
     Dates: start: 20230116, end: 20230121
  6. TRANSAMIN [Concomitant]
     Active Substance: TRANEXAMIC ACID
     Dosage: 3T,3X,AFTER EACH MEAL/DAY
     Route: 048
     Dates: start: 20230116
  7. CARBOCYSTEINE [Concomitant]
     Active Substance: CARBOCYSTEINE
     Dosage: 3T,3X,AFTER EACH MEAL/DAY
     Route: 048
     Dates: start: 20230116, end: 20230121
  8. EPRAZINONE [Concomitant]
     Active Substance: EPRAZINONE
     Dosage: 3T,3X,AFTER EACH MEAL/DAY
     Route: 048
     Dates: start: 20230116

REACTIONS (3)
  - Glomerular filtration rate decreased [Unknown]
  - Taste disorder [Recovering/Resolving]
  - Dysgeusia [Recovering/Resolving]

NARRATIVE: CASE EVENT DATE: 20230117
